FAERS Safety Report 8638496 (Version 2)
Quarter: 2013Q2

REPORT INFORMATION
  Report Type: Spontaneous
  Country: IT (occurrence: IT)
  Receive Date: 20120627
  Receipt Date: 20130513
  Transmission Date: 20140414
  Serious: Yes (Hospitalization)
  Sender: FDA-Public Use
  Company Number: IT-JNJFOC-20120610301

PATIENT
  Age: 56 Year
  Sex: Male

DRUGS (4)
  1. REMICADE [Suspect]
     Indication: ANKYLOSING SPONDYLITIS
     Route: 042
     Dates: start: 20070305, end: 20120403
  2. CELEBREX [Concomitant]
     Route: 065
  3. OMEPRAZEN [Concomitant]
     Route: 065
  4. METHOTREXATE [Concomitant]
     Indication: CROHN^S DISEASE
     Route: 030

REACTIONS (2)
  - Diverticulitis [Recovered/Resolved]
  - Acute abdomen [Recovered/Resolved]
